FAERS Safety Report 8474501-3 (Version None)
Quarter: 2012Q2

REPORT INFORMATION
  Report Type: 
  Country: None (occurrence: None)
  Receive Date: 20120628
  Receipt Date: 20120626
  Transmission Date: 20120825
  Serious: Yes (Hospitalization)
  Sender: FDA-Public Use
  Company Number: PHHY2012FR054961

PATIENT
  Sex: Female

DRUGS (1)
  1. ZOMETA [Suspect]
     Dosage: 4 MG, UNK
     Route: 042
     Dates: start: 20120207

REACTIONS (6)
  - BLOOD BICARBONATE INCREASED [None]
  - HYPOPHOSPHATAEMIA [None]
  - AMINOACIDURIA [None]
  - GLYCOSURIA [None]
  - FANCONI SYNDROME ACQUIRED [None]
  - HYPOKALAEMIA [None]
